FAERS Safety Report 20831131 (Version 2)
Quarter: 2022Q4

REPORT INFORMATION
  Report Type: Report from Study
  Country: US (occurrence: US)
  Receive Date: 20220515
  Receipt Date: 20221213
  Transmission Date: 20230112
  Serious: Yes (Other)
  Sender: FDA-Public Use
  Company Number: US-ABBVIE-22K-163-4394318-00

PATIENT
  Age: 33 Year
  Sex: Male

DRUGS (1)
  1. HUMIRA [Suspect]
     Active Substance: ADALIMUMAB
     Indication: Rheumatoid arthritis
     Dosage: CITRATE FREE
     Route: 058

REACTIONS (5)
  - Foot deformity [Unknown]
  - Joint effusion [Not Recovered/Not Resolved]
  - Tooth extraction [Unknown]
  - Hand deformity [Unknown]
  - Chondropathy [Not Recovered/Not Resolved]

NARRATIVE: CASE EVENT DATE: 20220301
